FAERS Safety Report 7573188-1 (Version None)
Quarter: 2011Q2

REPORT INFORMATION
  Report Type: 
  Country: None (occurrence: None)
  Receive Date: 20110627
  Receipt Date: 20110613
  Transmission Date: 20111010
  Serious: Yes (Hospitalization)
  Sender: FDA-Public Use
  Company Number: US-MYLANLABS-2011S1012565

PATIENT
  Age: 17 Year
  Sex: Female

DRUGS (5)
  1. CYCLOPHOSPHAMIDE [Suspect]
     Indication: CHORIOCARCINOMA
     Route: 065
  2. ETOPOSIDE [Suspect]
     Indication: CHORIOCARCINOMA
     Route: 065
  3. VINCRISTINE [Suspect]
     Indication: CHORIOCARCINOMA
     Route: 065
  4. DACTINOMYCIN [Suspect]
     Indication: CHORIOCARCINOMA
     Route: 065
  5. METHOTREXATE [Suspect]
     Indication: CHORIOCARCINOMA
     Route: 065

REACTIONS (6)
  - TUMOUR LYSIS SYNDROME [None]
  - CARDIAC FAILURE CONGESTIVE [None]
  - DEEP VEIN THROMBOSIS [None]
  - OESOPHAGITIS [None]
  - RENAL FAILURE ACUTE [None]
  - FUNGAEMIA [None]
